FAERS Safety Report 8444610-3 (Version None)
Quarter: 2012Q2

REPORT INFORMATION
  Report Type: 
  Country: None (occurrence: None)
  Receive Date: 20120618
  Receipt Date: 20120608
  Transmission Date: 20120825
  Serious: Yes (Hospitalization)
  Sender: FDA-Public Use
  Company Number: FI-ASTRAZENECA-2012SE38667

PATIENT
  Age: 68 Year
  Sex: Female

DRUGS (10)
  1. COZAAR [Concomitant]
     Route: 048
  2. ALVESCO [Concomitant]
     Route: 055
  3. CRESTOR [Suspect]
     Indication: HYPERCHOLESTEROLAEMIA
     Route: 048
     Dates: start: 20100324, end: 20110416
  4. OMEPRAZOLE [Concomitant]
     Route: 048
  5. SEREVENT [Concomitant]
     Route: 055
  6. FLUTICASONE FUROATE [Concomitant]
     Route: 045
  7. DIAPAM [Concomitant]
     Route: 048
  8. OXIKLORIN [Concomitant]
     Route: 002
  9. FORMOTEROL FUMARATE [Concomitant]
     Route: 055
  10. MONTELUKAST [Concomitant]
     Route: 048

REACTIONS (5)
  - AMNESIA [None]
  - TREMOR [None]
  - BLOOD PRESSURE INCREASED [None]
  - HEART RATE INCREASED [None]
  - PANIC ATTACK [None]
